FAERS Safety Report 5603258-6 (Version None)
Quarter: 2008Q1

REPORT INFORMATION
  Report Type: 
  Country: None (occurrence: None)
  Receive Date: 20080125
  Receipt Date: 20080114
  Transmission Date: 20080703
  Serious: Yes (Other)
  Sender: FDA-Public Use
  Company Number: US-PFIZER INC-2008004523

PATIENT
  Sex: Male

DRUGS (1)
  1. PREGABALIN [Suspect]

REACTIONS (6)
  - FLUID RETENTION [None]
  - INFECTION [None]
  - PSORIASIS [None]
  - SURGERY [None]
  - ULCER [None]
  - WOUND TREATMENT [None]
